FAERS Safety Report 23633454 (Version 1)
Quarter: 2024Q1

REPORT INFORMATION
  Report Type: Spontaneous
  Country: US (occurrence: US)
  Receive Date: 20240314
  Receipt Date: 20240314
  Transmission Date: 20240409
  Serious: No
  Sender: FDA-Public Use
  Company Number: US-ABBVIE-5671409

PATIENT
  Age: 22 Year
  Sex: Female
  Weight: 123 kg

DRUGS (1)
  1. LILETTA [Suspect]
     Active Substance: LEVONORGESTREL
     Indication: Product used for unknown indication
     Dosage: TIME INTERVAL: AS NECESSARY: FORM STRENGTH 52 MILLIGRAMS, STOP DATE 2024,? 20.4 MICROGRAMS/24 HRS
     Route: 015
     Dates: start: 20240125

REACTIONS (3)
  - Abnormal uterine bleeding [Unknown]
  - Device expulsion [Unknown]
  - Menstruation irregular [Unknown]

NARRATIVE: CASE EVENT DATE: 20240229
